FAERS Safety Report 13786680 (Version 1)
Quarter: 2017Q3

REPORT INFORMATION
  Report Type: Spontaneous
  Country: US (occurrence: US)
  Receive Date: 20170725
  Receipt Date: 20170725
  Transmission Date: 20171127
  Serious: No
  Sender: FDA-Public Use
  Company Number: None

PATIENT

DRUGS (2)
  1. PILOCARPINE. [Suspect]
     Active Substance: PILOCARPINE
     Dosage: DOSAGE FORM - SOLUTION?SIZE - 15 ML
     Route: 047
  2. PILOCARPINE. [Suspect]
     Active Substance: PILOCARPINE
     Dosage: DOSAGE FORM - SOLUTION?SIZE 15 ML
     Route: 047

REACTIONS (1)
  - Product packaging confusion [None]
